FAERS Safety Report 24993946 (Version 1)
Quarter: 2025Q1

REPORT INFORMATION
  Report Type: Spontaneous
  Country: GB (occurrence: GB)
  Receive Date: 20250221
  Receipt Date: 20250221
  Transmission Date: 20250408
  Serious: Yes (Other)
  Sender: DR REDDYS
  Company Number: None

PATIENT
  Age: 50 Year
  Sex: Male
  Weight: 77 kg

DRUGS (2)
  1. FINASTERIDE [Suspect]
     Active Substance: FINASTERIDE
     Indication: Ill-defined disorder
     Dates: start: 20250213
  2. ALFUZOSIN [Concomitant]
     Active Substance: ALFUZOSIN
     Indication: Ill-defined disorder
     Dosage: TAKE ONE DAILY?TPP YC - PLEASE RECLASSIFY
     Dates: start: 20240522

REACTIONS (1)
  - Suicidal ideation [Recovered/Resolved]

NARRATIVE: CASE EVENT DATE: 20250213
